FAERS Safety Report 16118275 (Version 1)
Quarter: 2019Q1

REPORT INFORMATION
  Report Type: Spontaneous
  Country: NO (occurrence: NO)
  Receive Date: 20190326
  Receipt Date: 20190326
  Transmission Date: 20190418
  Serious: Yes (Life-Threatening, Hospitalization, Disabling, Other)
  Sender: FDA-Public Use
  Company Number: NO-UCBSA-2019011407

PATIENT
  Sex: Male
  Weight: 75 kg

DRUGS (1)
  1. KEPPRA [Suspect]
     Active Substance: LEVETIRACETAM
     Indication: EPILEPSY
     Dosage: 1000 MG, 2X/DAY (BID)
     Dates: start: 20130301, end: 20180927

REACTIONS (12)
  - Confusional state [Recovered/Resolved with Sequelae]
  - Visual field defect [Recovered/Resolved with Sequelae]
  - Derealisation [Recovered/Resolved with Sequelae]
  - Depression [Recovered/Resolved]
  - Anxiety [Recovered/Resolved]
  - Rash [Recovered/Resolved]
  - Mental disorder [Recovering/Resolving]
  - Aggression [Recovered/Resolved with Sequelae]
  - Hallucination, auditory [Recovered/Resolved]
  - Muscle spasticity [Recovered/Resolved with Sequelae]
  - Cognitive disorder [Recovering/Resolving]
  - Intentional self-injury [Recovered/Resolved with Sequelae]

NARRATIVE: CASE EVENT DATE: 20131001
